FAERS Safety Report 16922925 (Version 2)
Quarter: 2019Q4

REPORT INFORMATION
  Report Type: Report from Study
  Country: None (occurrence: CA)
  Receive Date: 20191016
  Receipt Date: 20191107
  Transmission Date: 20200122
  Serious: Yes (Other)
  Sender: FDA-Public Use
  Company Number: CA-ABBVIE-19K-028-2959097-00

PATIENT
  Age: 82 Year
  Sex: Female

DRUGS (1)
  1. HUMIRA [Suspect]
     Active Substance: ADALIMUMAB
     Indication: RHEUMATOID ARTHRITIS
     Route: 058
     Dates: start: 20150305

REACTIONS (5)
  - Synovitis [Unknown]
  - Arthritis [Unknown]
  - Joint effusion [Unknown]
  - Rheumatoid arthritis [Unknown]
  - Obstruction [Recovered/Resolved]

NARRATIVE: CASE EVENT DATE: 20191007
